FAERS Safety Report 17117834 (Version 1)
Quarter: 2019Q4

REPORT INFORMATION
  Report Type: Spontaneous
  Country: IT (occurrence: IT)
  Receive Date: 20191205
  Receipt Date: 20191205
  Transmission Date: 20200122
  Serious: Yes (Other)
  Sender: FDA-Public Use
  Company Number: IT-PFIZER INC-2019523436

PATIENT
  Age: 38 Year
  Sex: Male

DRUGS (4)
  1. VINCRISTINE SULFATE. [Suspect]
     Active Substance: VINCRISTINE SULFATE
     Indication: SARCOMA
     Dosage: 2 MG, CYCLIC
     Route: 042
     Dates: start: 20190917, end: 20190917
  2. HOLOXAN [Suspect]
     Active Substance: IFOSFAMIDE
     Indication: SARCOMA
     Dosage: 3000 MG, CYCLIC
     Route: 042
     Dates: start: 20190917, end: 20190919
  3. FILGRASTIM [Concomitant]
     Active Substance: FILGRASTIM
     Indication: COLONY STIMULATING FACTOR THERAPY
     Dosage: (30 MU/0.5 ML SOLUTION FOR INJECTION OR INFUSION IN PREFILLED)
  4. CAELYX [Suspect]
     Active Substance: DOXORUBICIN HYDROCHLORIDE
     Indication: SARCOMA
     Dosage: 20 MG, CYCLIC
     Route: 042
     Dates: start: 20190917, end: 20190919

REACTIONS (4)
  - Leukopenia [Recovered/Resolved]
  - Product use in unapproved indication [Unknown]
  - Neutropenia [Recovered/Resolved]
  - Off label use [Unknown]

NARRATIVE: CASE EVENT DATE: 20190917
